FAERS Safety Report 6706471-X (Version None)
Quarter: 2010Q2

REPORT INFORMATION
  Report Type: 
  Country: None (occurrence: None)
  Receive Date: 20100503
  Receipt Date: 20080811
  Transmission Date: 20101027
  Serious: Yes (Other)
  Sender: FDA-Public Use
  Company Number: US-BAYER-200813361BCC

PATIENT
  Age: 73 Year
  Sex: Female
  Weight: 85 kg

DRUGS (6)
  1. ALEVE [Suspect]
     Dosage: TOTAL DAILY DOSE: 220 MG  UNIT DOSE: 220 MG
     Route: 048
     Dates: start: 20080811
  2. ALEVE [Suspect]
     Dosage: TOTAL DAILY DOSE: 220 MG  UNIT DOSE: 220 MG
     Route: 048
     Dates: start: 20080811
  3. ATENOLOL [Concomitant]
  4. LISINOPRIL [Concomitant]
  5. ONE-A-DAY VITAMIN [Concomitant]
     Dosage: ONE A DAY
  6. ASPIRIN [Concomitant]
     Dosage: BAYER ENTERIC COATED
     Route: 048

REACTIONS (1)
  - SPINAL COLUMN STENOSIS [None]
